FAERS Safety Report 10920462 (Version 2)
Quarter: 2015Q2

REPORT INFORMATION
  Report Type: Report from Study
  Country: GB (occurrence: GB)
  Receive Date: 20150317
  Receipt Date: 20150409
  Transmission Date: 20150821
  Serious: Yes (Hospitalization)
  Sender: FDA-Public Use
  Company Number: PHHO2015GB003567

PATIENT
  Age: 59 Year
  Sex: Male

DRUGS (9)
  1. AIN457 [Suspect]
     Active Substance: SECUKINUMAB
     Indication: PSORIASIS
     Dosage: 150 MG, UNK
     Route: 058
     Dates: start: 20150107
  2. TRAMADOL [Concomitant]
     Active Substance: TRAMADOL
  3. ASPIRIN. [Concomitant]
     Active Substance: ASPIRIN
  4. BISOPROLOL FUMARATE. [Concomitant]
     Active Substance: BISOPROLOL FUMARATE
  5. VENLAFAXINE [Concomitant]
     Active Substance: VENLAFAXINE HYDROCHLORIDE
  6. ENBREL [Concomitant]
     Active Substance: ETANERCEPT
  7. SALBUTAMOL [Concomitant]
     Active Substance: ALBUTEROL
  8. TIOTROPIUM [Concomitant]
     Active Substance: TIOTROPIUM
  9. NICORANDIL [Concomitant]
     Active Substance: NICORANDIL

REACTIONS (1)
  - Escherichia urinary tract infection [Recovered/Resolved]

NARRATIVE: CASE EVENT DATE: 20150216
